FAERS Safety Report 9788346 (Version 1)
Quarter: 2013Q4

REPORT INFORMATION
  Report Type: Spontaneous
  Country: JP (occurrence: JP)
  Receive Date: 20131230
  Receipt Date: 20131230
  Transmission Date: 20140711
  Serious: Yes (Other)
  Sender: FDA-Public Use
  Company Number: JP-VERTEX PHARMACEUTICALS INC-2013-012087

PATIENT
  Age: 57 Year
  Sex: Male

DRUGS (1)
  1. TELAVIC [Suspect]

REACTIONS (1)
  - Hepatocellular carcinoma [Unknown]
